FAERS Safety Report 12287649 (Version 1)
Quarter: 2016Q2

REPORT INFORMATION
  Report Type: Spontaneous
  Country: US (occurrence: US)
  Receive Date: 20160420
  Receipt Date: 20160420
  Transmission Date: 20160815
  Serious: Yes (Other)
  Sender: FDA-Public Use
  Company Number: US-AMGEN-USASP2016049367

PATIENT
  Age: 45 Year
  Sex: Female

DRUGS (2)
  1. VECTIBIX [Suspect]
     Active Substance: PANITUMUMAB
     Indication: COLON CANCER METASTATIC
     Dosage: UNK UNK, Q2WK
     Route: 065
     Dates: start: 20150824
  2. NEOSPORIN                          /00503001/ [Concomitant]
     Dosage: UNK

REACTIONS (7)
  - Carcinoembryonic antigen increased [Not Recovered/Not Resolved]
  - Pubis fracture [Unknown]
  - Rash pruritic [Unknown]
  - Rash papular [Unknown]
  - Fall [Unknown]
  - Nail disorder [Unknown]
  - Diarrhoea [Unknown]

NARRATIVE: CASE EVENT DATE: 201508
